FAERS Safety Report 8082088-2 (Version None)
Quarter: 2012Q1

REPORT INFORMATION
  Report Type: 
  Country: None (occurrence: None)
  Receive Date: 20120127
  Receipt Date: 20110228
  Transmission Date: 20120608
  Serious: Yes (Other)
  Sender: FDA-Public Use
  Company Number: US-ABBOTT-11P-163-0708090-00

PATIENT
  Sex: Male
  Weight: 170.25 kg

DRUGS (5)
  1. METHOTREXATE [Concomitant]
     Indication: RHEUMATOID ARTHRITIS
     Dates: start: 20050101
  2. GLYBURIDE [Concomitant]
     Indication: DIABETES MELLITUS
  3. HUMIRA [Suspect]
     Indication: RHEUMATOID ARTHRITIS
     Dates: start: 20100301
  4. LANTUS [Concomitant]
     Indication: DIABETES MELLITUS
     Route: 058
  5. METFFORMIN HYDROCHLORIDE [Concomitant]
     Indication: DIABETES MELLITUS
     Dosage: BID

REACTIONS (3)
  - BLOOD GLUCOSE ABNORMAL [None]
  - TOOTH INFECTION [None]
  - TOOTHACHE [None]
